FAERS Safety Report 12309564 (Version 1)
Quarter: 2016Q2

REPORT INFORMATION
  Report Type: Report from Study
  Country: US (occurrence: US)
  Receive Date: 20160427
  Receipt Date: 20160427
  Transmission Date: 20160815
  Serious: Yes (Other)
  Sender: FDA-Public Use
  Company Number: US-JNJFOC-20160323870

PATIENT
  Age: 57 Year
  Sex: Female

DRUGS (10)
  1. REMICADE [Suspect]
     Active Substance: INFLIXIMAB
     Indication: PRODUCT USED FOR UNKNOWN INDICATION
     Route: 042
     Dates: start: 20160128
  2. MAGNESIUM [Concomitant]
     Active Substance: MAGNESIUM
     Route: 065
  3. PREDNISONE. [Concomitant]
     Active Substance: PREDNISONE
     Route: 065
  4. REMICADE [Suspect]
     Active Substance: INFLIXIMAB
     Indication: PRODUCT USED FOR UNKNOWN INDICATION
     Route: 042
     Dates: start: 20160213
  5. DICLOFENAC SODIUM. [Concomitant]
     Active Substance: DICLOFENAC SODIUM
     Route: 065
  6. PREDNISONE. [Concomitant]
     Active Substance: PREDNISONE
     Route: 065
  7. REMICADE [Suspect]
     Active Substance: INFLIXIMAB
     Indication: PRODUCT USED FOR UNKNOWN INDICATION
     Route: 042
     Dates: start: 20160311
  8. CALCIUM [Concomitant]
     Active Substance: CALCIUM
     Route: 065
  9. METHOTREXATE [Concomitant]
     Active Substance: METHOTREXATE
     Route: 065
  10. FOLIC ACID. [Concomitant]
     Active Substance: FOLIC ACID
     Route: 065

REACTIONS (8)
  - Dementia [Not Recovered/Not Resolved]
  - Pyrexia [Recovered/Resolved]
  - Flushing [Recovered/Resolved]
  - Exophthalmos [Recovered/Resolved]
  - Chest pain [Recovered/Resolved]
  - Blood pressure increased [Recovered/Resolved]
  - Pain [Recovered/Resolved]
  - Infusion related reaction [Recovered/Resolved]

NARRATIVE: CASE EVENT DATE: 201602
